FAERS Safety Report 5474114-1 (Version None)
Quarter: 2007Q4

REPORT INFORMATION
  Report Type: 
  Country: None (occurrence: None)
  Receive Date: 20071002
  Receipt Date: 20070928
  Transmission Date: 20080405
  Serious: Yes (Other)
  Sender: FDA-Public Use
  Company Number: HQWYE187317SEP07

PATIENT
  Age: 27 Year
  Sex: Male

DRUGS (1)
  1. AMIODARONE HCL [Suspect]
     Indication: CARDIAC DISORDER
     Dosage: NOT PROVIDED
     Route: 048
     Dates: start: 20070828

REACTIONS (1)
  - NEPHRITIS INTERSTITIAL [None]
